FAERS Safety Report 5068216-1 (Version None)
Quarter: 2006Q3

REPORT INFORMATION
  Report Type: 
  Country: None (occurrence: None)
  Receive Date: 20060802
  Receipt Date: 20050606
  Transmission Date: 20061208
  Serious: No
  Sender: FDA-Public Use
  Company Number: US-BRISTOL-MYERS SQUIBB COMPANY-12994885

PATIENT
  Age: 9 Year
  Sex: Female
  Weight: 20 kg

DRUGS (3)
  1. COUMADIN [Suspect]
     Indication: HEART VALVE REPLACEMENT
     Dates: start: 20050401
  2. LASIX [Concomitant]
  3. VASOTEC [Concomitant]

REACTIONS (1)
  - ALOPECIA [None]
